FAERS Safety Report 8497023-2 (Version None)
Quarter: 2012Q3

REPORT INFORMATION
  Report Type: 
  Country: None (occurrence: None)
  Receive Date: 20120709
  Receipt Date: 20120604
  Transmission Date: 20120928
  Serious: No
  Sender: FDA-Public Use
  Company Number: US-AMGEN-USASP2012034777

PATIENT
  Age: 37 Year
  Sex: Female

DRUGS (1)
  1. ENBREL [Suspect]
     Indication: JUVENILE ARTHRITIS
     Dosage: 50 MG, 2 TIMES/WK
     Dates: start: 20050415

REACTIONS (6)
  - PARANASAL SINUS HYPERSECRETION [None]
  - VOMITING [None]
  - COUGH [None]
  - PYREXIA [None]
  - BRONCHITIS [None]
  - GASTROENTERITIS VIRAL [None]
